FAERS Safety Report 24934234 (Version 1)
Quarter: 2025Q1

REPORT INFORMATION
  Report Type: Spontaneous
  Country: GR (occurrence: GR)
  Receive Date: 20250206
  Receipt Date: 20250206
  Transmission Date: 20250409
  Serious: No
  Sender: EXELIXIS
  Company Number: GR-IPSEN Group, Research and Development-2024-24140

PATIENT
  Age: 58 Year
  Sex: Male

DRUGS (2)
  1. CABOMETYX [Suspect]
     Active Substance: CABOZANTINIB S-MALATE
     Indication: Renal cell carcinoma
     Dosage: 40 MG, QD
     Route: 048
     Dates: start: 202310
  2. NIVOLUMAB [Suspect]
     Active Substance: NIVOLUMAB
     Indication: Renal cell carcinoma
     Dosage: 480 MG Q4 WEEKS
     Route: 042
     Dates: start: 202310

REACTIONS (4)
  - Gastrointestinal toxicity [Unknown]
  - Skin toxicity [Unknown]
  - Stomatitis [Unknown]
  - Diarrhoea [Unknown]
